FAERS Safety Report 4279238-2 (Version None)
Quarter: 2004Q1

REPORT INFORMATION
  Report Type: 
  Country: None (occurrence: None)
  Receive Date: 20040126
  Receipt Date: 20040126
  Transmission Date: 20041129
  Serious: Yes (Death)
  Sender: FDA-Public Use
  Company Number: None

PATIENT
  Age: 74 Year
  Sex: Male
  Weight: 82 kg

DRUGS (2)
  1. METFORMIN HCL [Suspect]
     Indication: DIABETES MELLITUS
     Dosage: 500 MG PO TID
     Route: 048
  2. GLIPIZIDE [Suspect]
     Indication: DIABETES MELLITUS
     Dosage: 5 MG XL PO DAILY
     Route: 048

REACTIONS (12)
  - ACIDOSIS [None]
  - ANION GAP INCREASED [None]
  - BLOOD CREATININE INCREASED [None]
  - BLOOD GLUCOSE DECREASED [None]
  - BLOOD GLUCOSE FLUCTUATION [None]
  - BLOOD LACTIC ACID INCREASED [None]
  - DIALYSIS [None]
  - HYPERKALAEMIA [None]
  - LOBAR PNEUMONIA [None]
  - MOVEMENT DISORDER [None]
  - PCO2 DECREASED [None]
  - RESTLESSNESS [None]
